FAERS Safety Report 21038024 (Version 1)
Quarter: 2022Q3

REPORT INFORMATION
  Report Type: Spontaneous
  Country: US (occurrence: US)
  Receive Date: 20220704
  Receipt Date: 20220704
  Transmission Date: 20221026
  Serious: No
  Sender: FDA-Public Use
  Company Number: US-SA-SAC20220701000870

PATIENT
  Sex: Female

DRUGS (6)
  1. DUPIXENT [Suspect]
     Active Substance: DUPILUMAB
     Indication: Asthma
     Dosage: 300MG, QOW
     Route: 058
     Dates: start: 20200121
  2. NEOMYCIN SULFATE\POLYMYXIN B SULFATE [Suspect]
     Active Substance: NEOMYCIN SULFATE\POLYMYXIN B SULFATE
     Indication: Infection parasitic
     Dosage: UNK
  3. ADVAIR HFA [Concomitant]
     Active Substance: FLUTICASONE PROPIONATE\SALMETEROL XINAFOATE
     Dosage: UNK
  4. EMGALITY [Concomitant]
     Active Substance: GALCANEZUMAB-GNLM
  5. FLONASE [Concomitant]
     Active Substance: FLUTICASONE PROPIONATE
  6. VENTOLIN HFA [Concomitant]
     Active Substance: ALBUTEROL SULFATE

REACTIONS (2)
  - Tinea infection [Unknown]
  - Condition aggravated [Unknown]
